FAERS Safety Report 8778941 (Version 4)
Quarter: 2012Q4

REPORT INFORMATION
  Report Type: 
  Country: CA (occurrence: CA)
  Receive Date: 20120912
  Receipt Date: 20120920
  Transmission Date: 20130627
  Serious: Yes (Other)
  Sender: FDA-Public Use
  Company Number: PHHY2012CA078151

PATIENT
  Age: 63 Year
  Sex: Male

DRUGS (1)
  1. CLOZARIL [Suspect]
     Indication: SCHIZOPHRENIA
     Dosage: 50 mg qam + 25 mg qhs
     Route: 048
     Dates: start: 20120822, end: 20120905

REACTIONS (9)
  - Bacterial infection [Unknown]
  - Depressed level of consciousness [Not Recovered/Not Resolved]
  - Pyrexia [Unknown]
  - Neuroleptic malignant syndrome [Unknown]
  - Neutropenia [Unknown]
  - Neutrophil count decreased [Unknown]
  - Schizophrenia [Unknown]
  - Convulsion [Unknown]
  - Frontotemporal dementia [Unknown]
